FAERS Safety Report 4435349-X (Version None)
Quarter: 2004Q3

REPORT INFORMATION
  Report Type: 
  Country: None (occurrence: None)
  Receive Date: 20040827
  Receipt Date: 20040827
  Transmission Date: 20050211
  Serious: Yes (Other)
  Sender: FDA-Public Use
  Company Number: None

PATIENT

DRUGS (3)
  1. DESFLURANE [Suspect]
     Dosage: INHALED
     Route: 055
  2. SEVOFLURANE [Suspect]
     Dosage: INHALED
  3. CARBON DIOXIDE ABSORBENT [Concomitant]

REACTIONS (5)
  - ANAESTHETIC COMPLICATION [None]
  - CARBOXYHAEMOGLOBIN INCREASED [None]
  - HEAT EXPOSURE INJURY [None]
  - MEDICAL DEVICE COMPLICATION [None]
  - RESPIRATORY DISORDER [None]
